FAERS Safety Report 14905243 (Version 1)
Quarter: 2018Q2

REPORT INFORMATION
  Report Type: Spontaneous
  Country: US (occurrence: US)
  Receive Date: 20180517
  Receipt Date: 20180517
  Transmission Date: 20180711
  Serious: No
  Sender: FDA-Public Use
  Company Number: US-SA-2017SA236516

PATIENT
  Age: 71 Year
  Sex: Male

DRUGS (2)
  1. LANTUS SOLOSTAR [Suspect]
     Active Substance: INSULIN GLARGINE
     Indication: TYPE 2 DIABETES MELLITUS
     Dosage: DOSE:25 UNIT(S)
     Route: 051
     Dates: start: 201710
  2. SOLOSTAR [Suspect]
     Active Substance: DEVICE
     Indication: TYPE 2 DIABETES MELLITUS
     Dates: start: 201710

REACTIONS (7)
  - Herpes zoster [Unknown]
  - Product use issue [Unknown]
  - Memory impairment [Unknown]
  - Paraesthesia [Unknown]
  - Blood glucose increased [Recovering/Resolving]
  - Eye disorder [Unknown]
  - Neuropathy peripheral [Unknown]
